FAERS Safety Report 13819287 (Version 1)
Quarter: 2017Q3

REPORT INFORMATION
  Report Type: Report from Study
  Country: US (occurrence: US)
  Receive Date: 20170731
  Receipt Date: 20170731
  Transmission Date: 20171127
  Serious: No
  Sender: FDA-Public Use
  Company Number: US-EXELIXIS-CABO-17008221

PATIENT
  Age: 66 Year
  Sex: Male

DRUGS (15)
  1. CABOMETYX [Suspect]
     Active Substance: CABOZANTINIB S-MALATE
     Indication: RENAL CANCER
     Dosage: 60 MG, QD
     Route: 048
     Dates: start: 20160909
  2. PREDNISONE. [Concomitant]
     Active Substance: PREDNISONE
  3. SYNTHROID [Concomitant]
     Active Substance: LEVOTHYROXINE SODIUM
  4. MULTIPLE VITAMINS [Concomitant]
     Active Substance: VITAMINS
  5. ATENOLOL. [Concomitant]
     Active Substance: ATENOLOL
  6. LASIX [Concomitant]
     Active Substance: FUROSEMIDE
  7. OXYCODONE [Concomitant]
     Active Substance: OXYCODONE
  8. AMLODIPINE [Concomitant]
     Active Substance: AMLODIPINE BESYLATE
  9. LIDOCAINE. [Concomitant]
     Active Substance: LIDOCAINE
  10. COMBIVENT RESPIMAT [Concomitant]
     Active Substance: ALBUTEROL SULFATE\IPRATROPIUM BROMIDE
  11. ALBUTEROL. [Concomitant]
     Active Substance: ALBUTEROL
  12. OMEPRAZOLE. [Concomitant]
     Active Substance: OMEPRAZOLE
  13. ASPIRIN. [Concomitant]
     Active Substance: ASPIRIN
  14. PERCOCET [Concomitant]
     Active Substance: ACETAMINOPHEN\OXYCODONE HYDROCHLORIDE
  15. ONDANSETRON [Concomitant]
     Active Substance: ONDANSETRON

REACTIONS (4)
  - Pain in extremity [Unknown]
  - Oral pain [Unknown]
  - Nasal discomfort [Unknown]
  - Drug administration error [Unknown]

NARRATIVE: CASE EVENT DATE: 20161101
